FAERS Safety Report 4874230-9 (Version None)
Quarter: 2005Q4

REPORT INFORMATION
  Report Type: 
  Country: None (occurrence: None)
  Receive Date: 20051201
  Receipt Date: 20050809
  Transmission Date: 20060501
  Serious: No
  Sender: FDA-Public Use
  Company Number: 2005PV001000

PATIENT
  Age: 47 Year
  Sex: Male
  Weight: 94.3482 kg

DRUGS (3)
  1. BYETTA [Suspect]
     Indication: DIABETES MELLITUS NON-INSULIN-DEPENDENT
     Dosage: MCG; BID; SC; 5 MCG; SC
     Route: 058
     Dates: start: 20050601, end: 20010701
  2. BYETTA [Suspect]
     Indication: DIABETES MELLITUS NON-INSULIN-DEPENDENT
     Dosage: MCG; BID; SC; 5 MCG; SC
     Route: 058
     Dates: start: 20050701
  3. LANTUS [Concomitant]

REACTIONS (9)
  - BLOOD GLUCOSE DECREASED [None]
  - BLOOD GLUCOSE FLUCTUATION [None]
  - DEVICE MALFUNCTION [None]
  - FEELING JITTERY [None]
  - INJECTION SITE BRUISING [None]
  - INJECTION SITE IRRITATION [None]
  - NAUSEA [None]
  - PHARMACEUTICAL PRODUCT COMPLAINT [None]
  - VOMITING [None]
